FAERS Safety Report 7125374-2 (Version None)
Quarter: 2010Q4

REPORT INFORMATION
  Report Type: 
  Country: None (occurrence: None)
  Receive Date: 20101129
  Receipt Date: 20101116
  Transmission Date: 20110411
  Serious: Yes (Hospitalization)
  Sender: FDA-Public Use
  Company Number: DE-SANOFI-AVENTIS-2010SA069596

PATIENT
  Age: 79 Year
  Sex: Female
  Weight: 56 kg

DRUGS (6)
  1. MULTAQ [Suspect]
     Indication: VENTRICULAR EXTRASYSTOLES
     Route: 048
     Dates: start: 20101105
  2. MULTAQ [Suspect]
     Route: 048
     Dates: start: 20101105
  3. AMLODIPINE [Concomitant]
     Indication: HYPERTENSION
     Route: 048
  4. MARCUMAR [Concomitant]
     Indication: ATRIAL FIBRILLATION
     Dosage: ACCORDING TO THE INR VALUES
     Route: 048
  5. MARCUMAR [Concomitant]
     Dosage: ACCORDING TO THE INR VALUES
     Route: 048
  6. MAGIUM K [Concomitant]
     Indication: ELECTROLYTE SUBSTITUTION THERAPY
     Route: 048

REACTIONS (2)
  - TACHYARRHYTHMIA [None]
  - VENTRICULAR EXTRASYSTOLES [None]
